FAERS Safety Report 8544303-8 (Version None)
Quarter: 2012Q3

REPORT INFORMATION
  Report Type: 
  Country: None (occurrence: None)
  Receive Date: 20120719
  Receipt Date: 20120719
  Transmission Date: 20120928
  Serious: Yes (Other)
  Sender: FDA-Public Use
  Company Number: None

PATIENT
  Sex: Female

DRUGS (1)
  1. DEPO-PROVERA [Suspect]
     Indication: CONTRACEPTION
     Dosage: IM
     Route: 030

REACTIONS (3)
  - APHAGIA [None]
  - OVARIAN VEIN THROMBOSIS [None]
  - INSOMNIA [None]
